FAERS Safety Report 5785151-1 (Version None)
Quarter: 2008Q2

REPORT INFORMATION
  Report Type: 
  Country: None (occurrence: None)
  Receive Date: 20080624
  Receipt Date: 20070424
  Transmission Date: 20081010
  Serious: No
  Sender: FDA-Public Use
  Company Number: US-ASTRAZENECA-2007UW07994

PATIENT
  Age: 82 Year
  Sex: Female
  Weight: 83.9 kg

DRUGS (10)
  1. PULMICORT [Suspect]
     Indication: CHRONIC OBSTRUCTIVE PULMONARY DISEASE
     Route: 055
     Dates: start: 20040101
  2. PREVACID [Concomitant]
  3. PREDNISONE TAB [Concomitant]
  4. LIPITOR [Concomitant]
  5. LASIX [Concomitant]
  6. SPIRONOLACTONE [Concomitant]
  7. ASACOL [Concomitant]
     Dosage: 9 PER DAY
  8. COUMADIN [Concomitant]
  9. DOXEPIN HCL [Concomitant]
  10. MEDIHALER DUONEB [Concomitant]

REACTIONS (2)
  - NASAL CONGESTION [None]
  - VISUAL ACUITY REDUCED [None]
